FAERS Safety Report 14298297 (Version 1)
Quarter: 2017Q4

REPORT INFORMATION
  Report Type: Spontaneous
  Country: IL (occurrence: IL)
  Receive Date: 20171218
  Receipt Date: 20171218
  Transmission Date: 20180321
  Serious: Yes (Other)
  Sender: FDA-Public Use
  Company Number: PHHY2017IL177537

PATIENT
  Sex: Female

DRUGS (4)
  1. DESFERAL [Suspect]
     Active Substance: DEFEROXAMINE MESYLATE
     Indication: BLOOD IRON INCREASED
     Dosage: UNK
     Route: 065
  2. REVOLADE [Suspect]
     Active Substance: ELTROMBOPAG
     Indication: PAROXYSMAL NOCTURNAL HAEMOGLOBINURIA
     Dosage: UNK
     Route: 065
  3. EXJADE [Suspect]
     Active Substance: DEFERASIROX
     Indication: BLOOD IRON INCREASED
     Dosage: UNK
     Route: 065
  4. SOLIRIS [Concomitant]
     Active Substance: ECULIZUMAB
     Indication: PRODUCT USED FOR UNKNOWN INDICATION
     Dosage: UNK
     Route: 065

REACTIONS (7)
  - Hunger [Unknown]
  - Platelet count decreased [Unknown]
  - Urinary tract infection [Unknown]
  - Product use in unapproved indication [Unknown]
  - Blood iron increased [Unknown]
  - Drug effect decreased [Unknown]
  - Thrombosis [Unknown]
